FAERS Safety Report 13113119 (Version 1)
Quarter: 2017Q1

REPORT INFORMATION
  Report Type: Spontaneous
  Country: US (occurrence: US)
  Receive Date: 20170113
  Receipt Date: 20170113
  Transmission Date: 20170428
  Serious: No
  Sender: FDA-Public Use
  Company Number: US-009507513-1701USA003737

PATIENT
  Age: 71 Year
  Sex: Female

DRUGS (5)
  1. ZETIA [Suspect]
     Active Substance: EZETIMIBE
     Indication: BLOOD CHOLESTEROL INCREASED
     Dosage: 10 MG, QD
     Route: 048
     Dates: start: 2016, end: 201610
  2. OMEPRAZOLE. [Concomitant]
     Active Substance: OMEPRAZOLE
  3. GLUCOSAMINE [Concomitant]
     Active Substance: GLUCOSAMINE
  4. ATENOLOL. [Concomitant]
     Active Substance: ATENOLOL
  5. CHONDROITIN [Concomitant]
     Active Substance: CHONDROITIN

REACTIONS (5)
  - Abdominal pain upper [Not Recovered/Not Resolved]
  - Flatulence [Not Recovered/Not Resolved]
  - Insomnia [Not Recovered/Not Resolved]
  - Abdominal distension [Not Recovered/Not Resolved]
  - Arthritis [Not Recovered/Not Resolved]

NARRATIVE: CASE EVENT DATE: 2016
